FAERS Safety Report 8315863-7 (Version None)
Quarter: 2012Q2

REPORT INFORMATION
  Report Type: 
  Country: None (occurrence: None)
  Receive Date: 20120427
  Receipt Date: 20120424
  Transmission Date: 20120825
  Serious: No
  Sender: FDA-Public Use
  Company Number: US-BIOGENIDEC-2012BI014302

PATIENT
  Age: 44 Year
  Sex: Female

DRUGS (2)
  1. AVONEX [Suspect]
     Indication: MULTIPLE SCLEROSIS
     Route: 030
     Dates: start: 20111005
  2. TRAMADOL HCL [Concomitant]
     Indication: PSORIATIC ARTHROPATHY

REACTIONS (4)
  - INFLUENZA LIKE ILLNESS [None]
  - BLEPHAROSPASM [None]
  - MUSCLE TWITCHING [None]
  - ARTHRALGIA [None]
